FAERS Safety Report 16415460 (Version 1)
Quarter: 2019Q3

REPORT INFORMATION
  Report Type: Spontaneous
  Country: US (occurrence: US)
  Receive Date: 20190610
  Receipt Date: 20190610
  Transmission Date: 20191004
  Serious: Yes (Other)
  Sender: FDA-Public Use
  Company Number: None

PATIENT
  Age: 53 Year
  Sex: Male
  Weight: 81 kg

DRUGS (1)
  1. LEVETIRACETAM ER 500 MG [Suspect]
     Active Substance: LEVETIRACETAM
     Indication: MYOCLONIC EPILEPSY
     Dosage: ?          QUANTITY:1 TABLET(S);?
     Route: 048
     Dates: start: 20180525, end: 20180728

REACTIONS (4)
  - Product substitution issue [None]
  - Epilepsy [None]
  - Visual impairment [None]
  - Malaise [None]

NARRATIVE: CASE EVENT DATE: 20180728
